FAERS Safety Report 24130905 (Version 2)
Quarter: 2024Q3

REPORT INFORMATION
  Report Type: Report from Study
  Country: DE (occurrence: DE)
  Receive Date: 20240724
  Receipt Date: 20240801
  Transmission Date: 20241017
  Serious: Yes (Other)
  Sender: ROCHE
  Company Number: DE-ROCHE-3510301

PATIENT
  Age: 35 Year
  Sex: Female

DRUGS (3)
  1. OCREVUS [Suspect]
     Active Substance: OCRELIZUMAB
     Indication: Relapsing-remitting multiple sclerosis
     Dosage: FREQUENCY TEXT:17 DAYS
     Route: 042
     Dates: start: 20231201
  2. OCREVUS [Suspect]
     Active Substance: OCRELIZUMAB
     Dosage: FREQUENCY TEXT:17 DAYS
     Route: 042
     Dates: start: 20240626
  3. LORATADINE [Concomitant]
     Active Substance: LORATADINE

REACTIONS (7)
  - Bronchitis [Recovered/Resolved]
  - Fatigue [Not Recovered/Not Resolved]
  - Lower respiratory tract infection [Recovered/Resolved]
  - Throat irritation [Recovered/Resolved]
  - Scarlet fever [Recovered/Resolved]
  - Headache [Recovered/Resolved]
  - Magnetic resonance imaging abnormal [Not Recovered/Not Resolved]

NARRATIVE: CASE EVENT DATE: 20231201
